FAERS Safety Report 8071007-0 (Version None)
Quarter: 2012Q1

REPORT INFORMATION
  Report Type: 
  Country: None (occurrence: None)
  Receive Date: 20120125
  Receipt Date: 20120123
  Transmission Date: 20120608
  Serious: Yes (Death, Other)
  Sender: FDA-Public Use
  Company Number: US-B.I. PHARMACEUTICALS,INC./RIDGEFIELD-2011-BP-28169BP

PATIENT
  Sex: Male
  Weight: 88 kg

DRUGS (6)
  1. LIVAGO [Concomitant]
     Indication: HYPERLIPIDAEMIA
     Dosage: 1 G
  2. ASPIRIN [Concomitant]
     Indication: CORONARY ARTERY DISEASE
     Dosage: 81 MG
     Dates: start: 19920101
  3. MULTAQ [Concomitant]
     Indication: ATRIAL FIBRILLATION
     Dosage: 800 MG
     Dates: start: 20110201
  4. PROPRANOLOL [Concomitant]
     Indication: HYPERTENSION
     Dosage: 80 MG
     Dates: start: 19920101
  5. LIPITOR [Concomitant]
     Indication: HYPERLIPIDAEMIA
     Dosage: 40 MG
     Dates: start: 19920101
  6. PRADAXA [Suspect]
     Indication: ATRIAL FIBRILLATION
     Dosage: 300 MG
     Dates: start: 20110624, end: 20111208

REACTIONS (4)
  - HAEMORRHAGE [None]
  - ROAD TRAFFIC ACCIDENT [None]
  - INJURY [None]
  - HEAD INJURY [None]
